FAERS Safety Report 8024375-X (Version None)
Quarter: 2012Q1

REPORT INFORMATION
  Report Type: 
  Country: None (occurrence: None)
  Receive Date: 20120105
  Receipt Date: 20120105
  Transmission Date: 20120608
  Serious: Yes (Life-Threatening)
  Sender: FDA-Public Use
  Company Number: None

PATIENT
  Age: 42 Year
  Sex: Female
  Weight: 65.77 kg

DRUGS (1)
  1. LORYNA [Suspect]
     Indication: CONTRACEPTION
     Dosage: 1 TAB DAILY
     Route: 048
     Dates: start: 20111218, end: 20111221

REACTIONS (3)
  - PALPITATIONS [None]
  - PRODUCT SUBSTITUTION ISSUE [None]
  - VENTRICULAR EXTRASYSTOLES [None]
